FAERS Safety Report 6099385-2 (Version None)
Quarter: 2009Q1

REPORT INFORMATION
  Report Type: 
  Country: None (occurrence: None)
  Receive Date: 20090303
  Receipt Date: 20090218
  Transmission Date: 20090719
  Serious: Yes (Other)
  Sender: FDA-Public Use
  Company Number: US-PFIZER INC-2009175024

PATIENT
  Sex: Male
  Weight: 88.45 kg

DRUGS (5)
  1. CHANTIX [Suspect]
     Dates: start: 20080101, end: 20080529
  2. VERAPAMIL HYDROCHLORIDE [Concomitant]
  3. LOVASTATIN [Concomitant]
  4. REMERON [Concomitant]
  5. DEPAKOTE [Concomitant]

REACTIONS (2)
  - ROAD TRAFFIC ACCIDENT [None]
  - TOBACCO USER [None]
